FAERS Safety Report 13788718 (Version 3)
Quarter: 2018Q3

REPORT INFORMATION
  Report Type: Spontaneous
  Country: JP (occurrence: JP)
  Receive Date: 20170725
  Receipt Date: 20180810
  Transmission Date: 20181010
  Serious: Yes (Other)
  Sender: FDA-Public Use
  Company Number: JP-CIPLA LTD.-2017JP13232

PATIENT

DRUGS (5)
  1. CARBOPLATIN. [Suspect]
     Active Substance: CARBOPLATIN
     Indication: OVARIAN CANCER STAGE IV
     Dosage: UNK, ONCE IN 3 HRS, CBDCA AUC 5, POST OPERATIVE CHEMOTHERAPY
     Route: 065
  2. GEMCITABINE [Suspect]
     Active Substance: GEMCITABINE\GEMCITABINE HYDROCHLORIDE
     Indication: OVARIAN CANCER STAGE IV
     Dosage: 1000 MG/M2, DAY 1 AND 8, Q3 WEEKS, 6 CYCLES
     Route: 065
  3. NEDAPLATIN [Suspect]
     Active Substance: NEDAPLATIN
     Indication: OVARIAN CANCER STAGE IV
     Dosage: 80 MG/M2, DAY 1 Q3 WEEKS
     Route: 065
  4. CARBOPLATIN. [Suspect]
     Active Substance: CARBOPLATIN
     Dosage: UNK, SECONDLINE THERAPY
     Route: 065
  5. PACLITAXEL. [Concomitant]
     Active Substance: PACLITAXEL
     Indication: OVARIAN CANCER STAGE IV
     Dosage: UNK
     Route: 065

REACTIONS (6)
  - Hypersensitivity [Unknown]
  - Cytopenia [Recovered/Resolved]
  - Anaemia [Recovering/Resolving]
  - Dermatitis allergic [Recovering/Resolving]
  - Neoplasm recurrence [Unknown]
  - Leukopenia [Recovering/Resolving]
